FAERS Safety Report 15550389 (Version 3)
Quarter: 2018Q4

REPORT INFORMATION
  Report Type: Spontaneous
  Country: US (occurrence: US)
  Receive Date: 20181025
  Receipt Date: 20181211
  Transmission Date: 20190205
  Serious: No
  Sender: FDA-Public Use
  Company Number: US-BAYER-2018-198147

PATIENT
  Age: 21 Year
  Sex: Female

DRUGS (1)
  1. MIRENA [Suspect]
     Active Substance: LEVONORGESTREL
     Dosage: 20 MCG/24HR, CONT
     Route: 015
     Dates: start: 20180223, end: 201812

REACTIONS (9)
  - Abdominal distension [None]
  - Pharyngeal oedema [None]
  - Swelling face [None]
  - Swelling [Recovered/Resolved]
  - Abdominal distension [Recovered/Resolved with Sequelae]
  - Abdominal distension [Recovered/Resolved]
  - Abdominal distension [Recovered/Resolved with Sequelae]
  - Swelling [Recovered/Resolved with Sequelae]
  - Mouth swelling [None]

NARRATIVE: CASE EVENT DATE: 20181014
